FAERS Safety Report 12801365 (Version 1)
Quarter: 2016Q4

REPORT INFORMATION
  Report Type: Spontaneous
  Country: DE (occurrence: DE)
  Receive Date: 20161003
  Receipt Date: 20161003
  Transmission Date: 20170207
  Serious: Yes (Hospitalization)
  Sender: FDA-Public Use
  Company Number: DE-UCBSA-2016037591

PATIENT
  Age: 78 Year
  Sex: Female

DRUGS (5)
  1. KEPPRA [Suspect]
     Active Substance: LEVETIRACETAM
     Indication: PRODUCT USED FOR UNKNOWN INDICATION
     Dosage: 1000 MG, TOTAL , 1 TABL. /INGESTED BY MISTAKE (MIX-UP)
     Dates: start: 20160922, end: 20160922
  2. AMLODIPINE [Suspect]
     Active Substance: AMLODIPINE BESYLATE
     Indication: PRODUCT USED FOR UNKNOWN INDICATION
     Dosage: 10 MG, TOTAL (1 TABL. / MIX-UP)
     Dates: start: 20160922, end: 20160922
  3. RISPERDAL [Suspect]
     Active Substance: RISPERIDONE
     Indication: PRODUCT USED FOR UNKNOWN INDICATION
     Dosage: 0.5 MG, TOTAL  (1 TABL. / MIX-UP)
     Dates: start: 20160922, end: 20160922
  4. NOVALGIN [Suspect]
     Active Substance: METAMIZOLE SODIUM
     Indication: PRODUCT USED FOR UNKNOWN INDICATION
     Dosage: 500 MG, TOTAL (1 TABL. / MIX-UP)
     Dates: start: 20160922, end: 20160922
  5. ATORVASTATIN [Suspect]
     Active Substance: ATORVASTATIN
     Indication: PRODUCT USED FOR UNKNOWN INDICATION
     Dosage: 20 MG, TOTAL (1 TABL. / MIX-UP)
     Dates: start: 20160922, end: 20160922

REACTIONS (2)
  - Accidental exposure to product [Unknown]
  - Hypotension [Unknown]

NARRATIVE: CASE EVENT DATE: 20160922
